FAERS Safety Report 9562567 (Version 2)
Quarter: 2014Q1

REPORT INFORMATION
  Report Type: Spontaneous
  Country: US (occurrence: US)
  Receive Date: 20130927
  Receipt Date: 20140321
  Transmission Date: 20141002
  Serious: Yes (Hospitalization, Other)
  Sender: FDA-Public Use
  Company Number: US-ABBVIE-13P-163-1149760-00

PATIENT
  Sex: Female
  Weight: 49.94 kg

DRUGS (11)
  1. CREON [Suspect]
     Indication: PANCREATIC INSUFFICIENCY
     Dosage: 2-3 CAPSULES WITH MEALS
     Route: 048
     Dates: start: 2005, end: 201307
  2. VITAMIN D [Concomitant]
     Indication: VITAMIN SUPPLEMENTATION
  3. TUMERIC OTC [Concomitant]
     Indication: INFLAMMATION
  4. PROGESTERONE [Concomitant]
     Indication: HORMONE REPLACEMENT THERAPY
  5. ESTRIOL [Concomitant]
     Indication: HORMONE REPLACEMENT THERAPY
  6. FISH OIL [Concomitant]
     Indication: ARTHROPATHY
  7. MUCOUS RELIEF OTC [Concomitant]
     Indication: RHINORRHOEA
  8. NETANX [Concomitant]
     Indication: VITAMIN SUPPLEMENTATION
  9. OXYCODONE [Concomitant]
     Indication: PAIN
  10. PROBIOTICS [Concomitant]
     Indication: GASTROINTESTINAL DISORDER
  11. EVOXAC [Concomitant]
     Indication: SJOGREN^S SYNDROME

REACTIONS (4)
  - Rectal prolapse [Not Recovered/Not Resolved]
  - Fibrosing colonopathy [Not Recovered/Not Resolved]
  - Constipation [Not Recovered/Not Resolved]
  - Diarrhoea [Not Recovered/Not Resolved]
